FAERS Safety Report 18503235 (Version 2)
Quarter: 2021Q2

REPORT INFORMATION
  Report Type: Report from Study
  Country: US (occurrence: US)
  Receive Date: 20201113
  Receipt Date: 20210510
  Transmission Date: 20210717
  Serious: No
  Sender: FDA-Public Use
  Company Number: NVSC2020US297086

PATIENT
  Age: 71 Year
  Sex: Female

DRUGS (3)
  1. TABRECTA [Suspect]
     Active Substance: CAPMATINIB
     Dosage: 400 MG, BID
     Route: 048
     Dates: start: 20201008
  2. TABRECTA [Suspect]
     Active Substance: CAPMATINIB
     Dosage: UNK (FULL DOSE)
     Route: 065
  3. TABRECTA [Suspect]
     Active Substance: CAPMATINIB
     Indication: NON-SMALL CELL LUNG CANCER
     Dosage: UNK (LOWER DOSE)
     Route: 065

REACTIONS (2)
  - Abdominal discomfort [Unknown]
  - Oedema peripheral [Unknown]

NARRATIVE: CASE EVENT DATE: 20201201
